FAERS Safety Report 22649136 (Version 1)
Quarter: 2023Q2

REPORT INFORMATION
  Report Type: Spontaneous
  Country: US (occurrence: US)
  Receive Date: 20230628
  Receipt Date: 20230628
  Transmission Date: 20230721
  Serious: Yes (Hospitalization)
  Sender: FDA-Public Use
  Company Number: US-drreddys-LIT/USA/23/0168643

PATIENT
  Age: 28 Year
  Sex: Female

DRUGS (1)
  1. OXYTOCIN [Suspect]
     Active Substance: OXYTOCIN
     Indication: Labour induction

REACTIONS (3)
  - Drug ineffective [Unknown]
  - Normal newborn [Unknown]
  - Exposure during pregnancy [Unknown]
